FAERS Safety Report 4503481-8 (Version None)
Quarter: 2004Q4

REPORT INFORMATION
  Report Type: 
  Country: None (occurrence: None)
  Receive Date: 20041112
  Receipt Date: 20041029
  Transmission Date: 20050328
  Serious: Yes (Hospitalization)
  Sender: FDA-Public Use
  Company Number: K200401693

PATIENT
  Age: 38 Year
  Sex: Male
  Weight: 272.1 kg

DRUGS (1)
  1. SKELAXIN [Suspect]
     Indication: BACK INJURY
     Dosage: 800 MG, 2-3 TIMES DAILY, ORAL
     Route: 048
     Dates: start: 20040901, end: 20041001

REACTIONS (2)
  - HEPATIC FAILURE [None]
  - PRURITUS [None]
